FAERS Safety Report 15552330 (Version 1)
Quarter: 2018Q4

REPORT INFORMATION
  Report Type: Spontaneous
  Country: US (occurrence: US)
  Receive Date: 20181025
  Receipt Date: 20181025
  Transmission Date: 20190205
  Serious: Yes (Death)
  Sender: FDA-Public Use
  Company Number: US-PFIZER INC-2018433362

PATIENT
  Age: 73 Year
  Sex: Female

DRUGS (1)
  1. REVATIO [Suspect]
     Active Substance: SILDENAFIL CITRATE
     Indication: PULMONARY HYPERTENSION
     Dosage: 40 MG, THRICE DAILY (2 TABLETS 3 TIMES DAILY)
     Route: 048
     Dates: start: 2015, end: 2018

REACTIONS (2)
  - Chronic obstructive pulmonary disease [Fatal]
  - Product use issue [Unknown]

NARRATIVE: CASE EVENT DATE: 2015
